FAERS Safety Report 11519012 (Version 2)
Quarter: 2017Q3

REPORT INFORMATION
  Report Type: Report from Study
  Country: US (occurrence: US)
  Receive Date: 20150917
  Receipt Date: 20170818
  Transmission Date: 20171127
  Serious: No
  Sender: FDA-Public Use
  Company Number: PHEH2015US018154

PATIENT
  Sex: Female

DRUGS (3)
  1. ILARIS [Suspect]
     Active Substance: CANAKINUMAB
     Indication: PRODUCT USED FOR UNKNOWN INDICATION
     Dosage: 1 ML, (EVERY 8 WEEKS)
     Route: 058
  2. ILARIS [Suspect]
     Active Substance: CANAKINUMAB
     Dosage: EVERY 8 WEEKS
     Route: 065
     Dates: start: 20170524
  3. ILARIS [Suspect]
     Active Substance: CANAKINUMAB
     Dosage: EVERY 8 WEEKS
     Route: 065
     Dates: start: 20170814

REACTIONS (1)
  - Inappropriate schedule of drug administration [Unknown]
